FAERS Safety Report 7728497-X (Version None)
Quarter: 2011Q3

REPORT INFORMATION
  Report Type: 
  Country: None (occurrence: None)
  Receive Date: 20110905
  Receipt Date: 20110824
  Transmission Date: 20111222
  Serious: Yes (Hospitalization)
  Sender: FDA-Public Use
  Company Number: JP-SANOFI-AVENTIS-2011SA055488

PATIENT
  Age: 92 Year
  Sex: Female

DRUGS (1)
  1. GLIMEPIRIDE [Suspect]
     Route: 048

REACTIONS (7)
  - URINARY INCONTINENCE [None]
  - DEPRESSED LEVEL OF CONSCIOUSNESS [None]
  - CYTOTOXIC OEDEMA [None]
  - HEMIPARESIS [None]
  - IMMOBILE [None]
  - COMMUNICATION DISORDER [None]
  - HYPOGLYCAEMIC ENCEPHALOPATHY [None]
